FAERS Safety Report 4702529-5 (Version None)
Quarter: 2005Q2

REPORT INFORMATION
  Report Type: 
  Country: None (occurrence: None)
  Receive Date: 20050624
  Receipt Date: 20050509
  Transmission Date: 20051028
  Serious: No
  Sender: FDA-Public Use
  Company Number: 2005BI009442

PATIENT
  Age: 66 Year
  Sex: Female
  Weight: 70.3075 kg

DRUGS (2)
  1. NATALIZUMAB [Suspect]
     Indication: MULTIPLE SCLEROSIS
     Dosage: 300 MG; QM; IV
     Route: 042
     Dates: start: 20050207, end: 20050207
  2. AVONEX [Suspect]
     Indication: MULTIPLE SCLEROSIS
     Dosage: 30 UG; QW; IM
     Route: 030
     Dates: start: 20050322

REACTIONS (10)
  - ABNORMAL DREAMS [None]
  - ALTERED VISUAL DEPTH PERCEPTION [None]
  - ANXIETY [None]
  - CHILLS [None]
  - EARLY MORNING AWAKENING [None]
  - FEELING ABNORMAL [None]
  - INFLUENZA LIKE ILLNESS [None]
  - NERVOUSNESS [None]
  - PANIC ATTACK [None]
  - VISUAL DISTURBANCE [None]
